FAERS Safety Report 23090776 (Version 1)
Quarter: 2023Q4

REPORT INFORMATION
  Report Type: Spontaneous
  Country: IN (occurrence: IN)
  Receive Date: 20231020
  Receipt Date: 20231020
  Transmission Date: 20240109
  Serious: Yes (Death, Other)
  Sender: FDA-Public Use
  Company Number: IN-SUN PHARMACEUTICAL INDUSTRIES LTD-2023R1-413793

PATIENT
  Age: 61 Year
  Sex: Female

DRUGS (4)
  1. BUDESONIDE [Suspect]
     Active Substance: BUDESONIDE
     Indication: Autonomic nervous system imbalance
     Dosage: UNK
     Route: 065
  2. BUDESONIDE [Suspect]
     Active Substance: BUDESONIDE
     Indication: Bronchospasm
  3. PREDNISOLONE [Suspect]
     Active Substance: PREDNISOLONE
     Indication: Autonomic nervous system imbalance
     Dosage: UNK
     Route: 048
  4. PREDNISOLONE [Suspect]
     Active Substance: PREDNISOLONE
     Indication: Bronchospasm

REACTIONS (4)
  - Pneumonia [Fatal]
  - Cardiac arrest [Fatal]
  - Renal failure [Fatal]
  - Sepsis [Fatal]
